FAERS Safety Report 8379757-3 (Version None)
Quarter: 2012Q2

REPORT INFORMATION
  Report Type: 
  Country: None (occurrence: None)
  Receive Date: 20120523
  Receipt Date: 20120515
  Transmission Date: 20120825
  Serious: Yes (Other)
  Sender: FDA-Public Use
  Company Number: ZA-GENZYME-POMP-1002221

PATIENT

DRUGS (1)
  1. MYOZYME [Suspect]
     Indication: GLYCOGEN STORAGE DISEASE TYPE II
     Dosage: 4 VIALS, QW
     Route: 042
     Dates: start: 20100101

REACTIONS (2)
  - WOUND DEHISCENCE [None]
  - JUVENILE MELANOMA BENIGN [None]
